FAERS Safety Report 18576110 (Version 1)
Quarter: 2020Q4

REPORT INFORMATION
  Report Type: Spontaneous
  Country: ES (occurrence: ES)
  Receive Date: 20201203
  Receipt Date: 20201203
  Transmission Date: 20210114
  Serious: Yes (Hospitalization)
  Sender: FDA-Public Use
  Company Number: ES-ALLERGAN-2046574US

PATIENT
  Sex: Male

DRUGS (1)
  1. ESCITALOPRAM OXALATE - BP [Suspect]
     Active Substance: ESCITALOPRAM OXALATE
     Indication: DEPRESSION
     Dosage: OVERDOSE: UNKNOWN DOSE
     Route: 048
     Dates: start: 20201012, end: 20201012

REACTIONS (2)
  - Intentional overdose [Unknown]
  - Diarrhoea [Recovered/Resolved]

NARRATIVE: CASE EVENT DATE: 20201012
